FAERS Safety Report 20775405 (Version 1)
Quarter: 2022Q2

REPORT INFORMATION
  Report Type: Spontaneous
  Country: US (occurrence: US)
  Receive Date: 20220502
  Receipt Date: 20220502
  Transmission Date: 20220721
  Serious: Yes (Other)
  Sender: FDA-Public Use
  Company Number: US-LUPIN PHARMACEUTICALS INC.-2022-06411

PATIENT
  Age: 71 Year
  Sex: Male

DRUGS (12)
  1. TRIAMCINOLONE [Suspect]
     Active Substance: TRIAMCINOLONE
     Indication: Transient acantholytic dermatosis
     Dosage: UNK OINTMENT
     Route: 061
  2. CETIRIZINE [Suspect]
     Active Substance: CETIRIZINE HYDROCHLORIDE
     Indication: Transient acantholytic dermatosis
     Dosage: UNK
     Route: 065
  3. GABAPENTIN [Suspect]
     Active Substance: GABAPENTIN
     Indication: Transient acantholytic dermatosis
     Dosage: UNK
     Route: 065
  4. PREDNISONE [Suspect]
     Active Substance: PREDNISONE
     Indication: Transient acantholytic dermatosis
     Dosage: 60 MILLIGRAM WITH TAPERING FOR 8 DAYS
     Route: 048
  5. PREDNISONE [Suspect]
     Active Substance: PREDNISONE
     Dosage: LONGER COURSES
     Route: 065
  6. APREPITANT [Suspect]
     Active Substance: APREPITANT
     Indication: Transient acantholytic dermatosis
     Dosage: UNK
     Route: 065
  7. HYDROXYZINE [Suspect]
     Active Substance: HYDROXYZINE HYDROCHLORIDE
     Indication: Transient acantholytic dermatosis
     Dosage: UNK
     Route: 065
  8. DIPHENHYDRAMINE [Suspect]
     Active Substance: DIPHENHYDRAMINE
     Indication: Transient acantholytic dermatosis
     Dosage: UNK
     Route: 065
  9. DUPILUMAB [Concomitant]
     Active Substance: DUPILUMAB
     Indication: Transient acantholytic dermatosis
     Dosage: 600 MILLIGRAM
     Route: 058
  10. DUPILUMAB [Concomitant]
     Active Substance: DUPILUMAB
     Dosage: 300 MILLIGRAM EVERY 2 WEEKS
     Route: 058
  11. NIVOLUMAB [Concomitant]
     Active Substance: NIVOLUMAB
     Indication: Metastatic renal cell carcinoma
     Dosage: UNK
     Route: 065
  12. IPILIMUMAB [Concomitant]
     Active Substance: IPILIMUMAB
     Indication: Metastatic renal cell carcinoma
     Dosage: UNK
     Route: 065

REACTIONS (2)
  - Drug ineffective for unapproved indication [Unknown]
  - Off label use [Unknown]
